FAERS Safety Report 9808573 (Version 4)
Quarter: 2014Q4

REPORT INFORMATION
  Report Type: Report from Study
  Country: US (occurrence: US)
  Receive Date: 20140110
  Receipt Date: 20141210
  Transmission Date: 20150529
  Serious: Yes (Hospitalization, Other)
  Sender: FDA-Public Use
  Company Number: US-MYLANLABS-2014S1000200

PATIENT

DRUGS (12)
  1. PREDNISONE. [Concomitant]
     Active Substance: PREDNISONE
     Indication: IMMUNOSUPPRESSANT DRUG THERAPY
     Dosage: 10 MG, QD
     Route: 048
     Dates: start: 20130402
  2. LOSARTAN [Concomitant]
     Active Substance: LOSARTAN
     Indication: BLOOD PRESSURE MANAGEMENT
     Dosage: 50 MG, QD
     Route: 048
     Dates: start: 20130107
  3. CARDIZEM [Concomitant]
     Active Substance: DILTIAZEM HYDROCHLORIDE
     Dosage: 240 MG, AM
     Route: 048
     Dates: start: 20131002
  4. SPIRONOLACTONE. [Concomitant]
     Active Substance: SPIRONOLACTONE
     Indication: BLOOD PRESSURE MANAGEMENT
     Dosage: 50 MG, BID
     Route: 048
     Dates: start: 20131106
  5. PROGRAF [Concomitant]
     Active Substance: TACROLIMUS\TACROLIMUS ANHYDROUS
     Indication: PROPHYLAXIS AGAINST TRANSPLANT REJECTION
     Dosage: 1 MG,BID
     Route: 048
     Dates: start: 20130721
  6. MAGNESIUM OXIDE. [Concomitant]
     Active Substance: MAGNESIUM OXIDE
     Indication: SUPPLEMENTATION THERAPY
     Dosage: 400 MG,QD
     Route: 048
     Dates: start: 20130105
  7. CLONIDINE. [Concomitant]
     Active Substance: CLONIDINE
     Indication: HYPERTENSION
     Dosage: .2 MG,BID
     Route: 048
     Dates: start: 20130208
  8. VITAMIN D3 [Concomitant]
     Active Substance: CHOLECALCIFEROL
     Indication: SUPPLEMENTATION THERAPY
     Dosage: 1000 IU,QD
     Route: 048
     Dates: start: 20130117
  9. CARDIZEM [Concomitant]
     Active Substance: DILTIAZEM HYDROCHLORIDE
     Indication: HYPERTENSION
     Dosage: 120 MG,HS
     Route: 048
     Dates: start: 20131106
  10. METOPROLOL [Suspect]
     Active Substance: METOPROLOL
     Indication: HYPERTENSION
     Dosage: 100 MG,BID
     Route: 048
     Dates: start: 20130207, end: 20131118
  11. METOPROLOL [Suspect]
     Active Substance: METOPROLOL
     Dosage: UNK
     Route: 048
     Dates: start: 20131118
  12. VALCYTE [Concomitant]
     Active Substance: VALGANCICLOVIR HYDROCHLORIDE
     Indication: ANTIVIRAL PROPHYLAXIS
     Dosage: 450 MG,QD
     Route: 048
     Dates: start: 20131120

REACTIONS (4)
  - Dehydration [Recovered/Resolved]
  - Acute kidney injury [Recovered/Resolved]
  - Anaemia [Not Recovered/Not Resolved]
  - Hyperkalaemia [Recovered/Resolved]

NARRATIVE: CASE EVENT DATE: 20131118
